FAERS Safety Report 4848093-1 (Version None)
Quarter: 2005Q4

REPORT INFORMATION
  Report Type: 
  Country: None (occurrence: None)
  Receive Date: 20051205
  Receipt Date: 20051201
  Transmission Date: 20060501
  Serious: Yes (Other)
  Sender: FDA-Public Use
  Company Number: HQWYE787901DEC05

PATIENT
  Sex: Male

DRUGS (1)
  1. PANTOLOC (PANTOPRAZOLE, UNSPEC) [Suspect]

REACTIONS (1)
  - GYNAECOMASTIA [None]
